FAERS Safety Report 8325481-2 (Version None)
Quarter: 2012Q2

REPORT INFORMATION
  Report Type: 
  Country: None (occurrence: None)
  Receive Date: 20120427
  Receipt Date: 20120413
  Transmission Date: 20120825
  Serious: Yes (Disabling)
  Sender: FDA-Public Use
  Company Number: PI-07087

PATIENT
  Age: 62 Year
  Sex: Male

DRUGS (1)
  1. CHLORAPREP [Suspect]
     Indication: PREOPERATIVE CARE
     Dosage: 26ML, ONCE, TOPICAL
     Route: 061
     Dates: start: 20100101

REACTIONS (3)
  - CHEMICAL BURN OF SKIN [None]
  - APPLICATION SITE SCAR [None]
  - APPLICATION SITE REACTION [None]
